FAERS Safety Report 6648342-3 (Version None)
Quarter: 2010Q1

REPORT INFORMATION
  Report Type: 
  Country: None (occurrence: None)
  Receive Date: 20100318
  Receipt Date: 20090512
  Transmission Date: 20100710
  Serious: Yes (Hospitalization)
  Sender: FDA-Public Use
  Company Number: FR-2008-0439

PATIENT
  Age: 79 Year
  Sex: Male

DRUGS (1)
  1. NAVELBINE [Suspect]
     Indication: LUNG CANCER METASTATIC
     Dosage: 45 MG IV
     Route: 042
     Dates: start: 20080625, end: 20080625

REACTIONS (3)
  - BRONCHOSPASM [None]
  - CYANOSIS [None]
  - DYSPNOEA [None]
